FAERS Safety Report 7271977-4 (Version None)
Quarter: 2011Q1

REPORT INFORMATION
  Report Type: 
  Country: None (occurrence: None)
  Receive Date: 20110203
  Receipt Date: 20110124
  Transmission Date: 20110831
  Serious: Yes (Hospitalization)
  Sender: FDA-Public Use
  Company Number: FR-SANOFI-AVENTIS-2011SA004633

PATIENT
  Age: 55 Year
  Sex: Male
  Weight: 148 kg

DRUGS (8)
  1. MULTAQ [Suspect]
     Indication: ATRIAL FIBRILLATION
     Route: 048
     Dates: start: 20101201, end: 20110101
  2. BISOPROLOL FUMARATE [Concomitant]
     Route: 048
  3. FOLIC ACID [Concomitant]
     Route: 048
  4. INIPOMP [Concomitant]
     Route: 048
  5. AMIODARONE [Concomitant]
     Route: 048
  6. DIFFU K [Concomitant]
     Route: 048
  7. BURINEX [Concomitant]
     Route: 048
  8. PREVISCAN [Concomitant]
     Route: 048

REACTIONS (1)
  - CARDIAC FAILURE CONGESTIVE [None]
